FAERS Safety Report 19395324 (Version 1)
Quarter: 2021Q2

REPORT INFORMATION
  Report Type: Spontaneous
  Country: GB (occurrence: GB)
  Receive Date: 20210609
  Receipt Date: 20210609
  Transmission Date: 20210717
  Serious: Yes (Other)
  Sender: FDA-Public Use
  Company Number: GB-TEVA-2021-GB-1919027

PATIENT
  Age: 18 Year
  Sex: Female

DRUGS (1)
  1. COCODAMOL [Suspect]
     Active Substance: ACETAMINOPHEN\CODEINE PHOSPHATE
     Indication: PAIN
     Route: 065

REACTIONS (11)
  - Headache [Recovered/Resolved]
  - Gastrointestinal disorder [Recovering/Resolving]
  - Emotional distress [Recovering/Resolving]
  - Pain [Recovering/Resolving]
  - Malaise [Recovering/Resolving]
  - Abdominal distension [Recovering/Resolving]
  - Myalgia [Recovered/Resolved]
  - Nausea [Recovered/Resolved]
  - Gastric dilatation [Recovered/Resolved]
  - Constipation [Recovering/Resolving]
  - Fatigue [Recovered/Resolved]
